FAERS Safety Report 6847827-4 (Version None)
Quarter: 2010Q3

REPORT INFORMATION
  Report Type: 
  Country: None (occurrence: None)
  Receive Date: 20100716
  Receipt Date: 20100708
  Transmission Date: 20110219
  Serious: Yes (Life-Threatening, Hospitalization, Other)
  Sender: FDA-Public Use
  Company Number: US-BAYER-201023115NA

PATIENT
  Age: 73 Year
  Sex: Female
  Weight: 73 kg

DRUGS (17)
  1. MAGNEVIST [Suspect]
     Indication: NUCLEAR MAGNETIC RESONANCE IMAGING
     Dosage: TOTAL DAILY DOSE: 15 ML  UNIT DOSE: 15 ML
     Dates: start: 20100512, end: 20100512
  2. SEROQUEL [Concomitant]
  3. JANUVIA [Concomitant]
  4. ELMIRON [Concomitant]
  5. ASPIRIN [Concomitant]
  6. HYDROCODONE [Concomitant]
  7. PREMARIN [Concomitant]
  8. METOPROLOL [Concomitant]
  9. NEURONTIN [Concomitant]
  10. LEVOTHYROXINE SODIUM [Concomitant]
  11. AMBIEN [Concomitant]
  12. CRESTOR [Concomitant]
  13. PLAVIX [Concomitant]
  14. OMEPRAZOLE [Concomitant]
  15. CYMBALTA [Concomitant]
  16. METHSCOPOLAMINE [Concomitant]
  17. IMDUR [Concomitant]

REACTIONS (6)
  - BLOOD PRESSURE IMMEASURABLE [None]
  - DIZZINESS [None]
  - NAUSEA [None]
  - PULSE ABSENT [None]
  - RESPIRATORY ARREST [None]
  - UNRESPONSIVE TO STIMULI [None]
